FAERS Safety Report 5847066-X (Version None)
Quarter: 2008Q3

REPORT INFORMATION
  Report Type: 
  Country: None (occurrence: None)
  Receive Date: 20080815
  Receipt Date: 20080807
  Transmission Date: 20090109
  Serious: Yes (Hospitalization, Other)
  Sender: FDA-Public Use
  Company Number: US-ASTRAZENECA-2003UW09606

PATIENT
  Age: 59 Year
  Sex: Male
  Weight: 70.8 kg

DRUGS (15)
  1. SEROQUEL [Suspect]
     Indication: SCHIZOPHRENIA
     Dosage: 25-150 MG DAILY
     Route: 048
     Dates: start: 20011113, end: 20030729
  2. SEROQUEL [Suspect]
     Indication: AGITATION
     Dosage: 25-150 MG DAILY
     Route: 048
     Dates: start: 20011113, end: 20030729
  3. ZYPREXA [Concomitant]
  4. TAMSULOSIN HCL [Concomitant]
  5. TRAZODONE HCL [Concomitant]
  6. SODIUM POLYSTYRENE [Concomitant]
  7. SIMVASTATIN [Concomitant]
  8. CALCITRIOL [Concomitant]
  9. CALCIUM ACETATE [Concomitant]
  10. AMLODIPINE [Concomitant]
  11. OMEPRAZOLE [Concomitant]
  12. INSULIN INSULATARD NPH NORDISK [Concomitant]
  13. SODIUM BICARBONATE [Concomitant]
  14. THYROID TAB [Concomitant]
  15. DARBEPOETIN ALPHA [Concomitant]

REACTIONS (19)
  - ANAEMIA [None]
  - ARTHRALGIA [None]
  - BLOOD GLUCOSE INCREASED [None]
  - BLOOD OSMOLARITY DECREASED [None]
  - CEREBROVASCULAR ACCIDENT [None]
  - CONSTIPATION [None]
  - DIABETES MELLITUS [None]
  - GAIT DISTURBANCE [None]
  - GASTRITIS [None]
  - GASTRODUODENITIS [None]
  - HYPERLIPIDAEMIA [None]
  - HYPERTENSION [None]
  - HYPONATRAEMIA [None]
  - PROTEINURIA [None]
  - RED BLOOD CELL COUNT DECREASED [None]
  - RENAL DISORDER [None]
  - URINARY RETENTION [None]
  - VISION BLURRED [None]
  - WEIGHT DECREASED [None]
